FAERS Safety Report 8208026-7 (Version None)
Quarter: 2012Q1

REPORT INFORMATION
  Report Type: 
  Country: None (occurrence: None)
  Receive Date: 20120314
  Receipt Date: 20120307
  Transmission Date: 20120608
  Serious: Yes (Other)
  Sender: FDA-Public Use
  Company Number: US-ABBOTT-12P-163-0913250-00

PATIENT
  Sex: Male
  Weight: 87.168 kg

DRUGS (5)
  1. ASPIRIN [Concomitant]
     Indication: CARDIAC DISORDER
     Dosage: 81, 2 PER DAY
  2. MELOXICAM [Concomitant]
     Indication: ANKYLOSING SPONDYLITIS
  3. HUMIRA [Suspect]
     Indication: ANKYLOSING SPONDYLITIS
  4. PREDNISONE [Concomitant]
     Indication: ANKYLOSING SPONDYLITIS
  5. HUMIRA [Suspect]
     Dates: start: 20120310

REACTIONS (6)
  - MUSCULOSKELETAL PAIN [None]
  - MUSCLE STRAIN [None]
  - MUSCULOSKELETAL STIFFNESS [None]
  - AORTIC ANEURYSM [None]
  - PAIN [None]
  - HERNIA [None]
